FAERS Safety Report 23530972 (Version 1)
Quarter: 2024Q1

REPORT INFORMATION
  Report Type: Spontaneous
  Country: US (occurrence: US)
  Receive Date: 20240216
  Receipt Date: 20240216
  Transmission Date: 20240409
  Serious: No
  Sender: FDA-Public Use
  Company Number: US-BAYER-2024A014814

PATIENT
  Age: 42 Year
  Sex: Male

DRUGS (1)
  1. KOGENATE FS [Suspect]
     Active Substance: ANTIHEMOPHILIC FACTOR, HUMAN RECOMBINANT
     Indication: Haemorrhage
     Dosage: 2000 UNITS TO 2200 UNITS AS NEEDED FOR BLEED

REACTIONS (3)
  - Limb injury [None]
  - Contusion [None]
  - Product use issue [None]

NARRATIVE: CASE EVENT DATE: 20240117
